FAERS Safety Report 20235594 (Version 1)
Quarter: 2021Q4

REPORT INFORMATION
  Report Type: Spontaneous
  Country: US (occurrence: US)
  Receive Date: 20211228
  Receipt Date: 20211228
  Transmission Date: 20220303
  Serious: Yes (Other)
  Sender: FDA-Public Use
  Company Number: US-NOVOPROD-878856

PATIENT
  Sex: Female

DRUGS (1)
  1. VICTOZA [Suspect]
     Active Substance: LIRAGLUTIDE
     Indication: Type 2 diabetes mellitus
     Dosage: UNK
     Route: 058
     Dates: start: 202108, end: 202108

REACTIONS (7)
  - Neurogenic bladder [Unknown]
  - Arthralgia [Unknown]
  - Drug intolerance [Unknown]
  - Adverse drug reaction [Unknown]
  - Headache [Unknown]
  - Product communication issue [Unknown]
  - Wrong technique in product usage process [Unknown]
